FAERS Safety Report 9829971 (Version 1)
Quarter: 2014Q1

REPORT INFORMATION
  Report Type: Spontaneous
  Country: CZ (occurrence: CZ)
  Receive Date: 20140120
  Receipt Date: 20140120
  Transmission Date: 20141002
  Serious: Yes (Hospitalization)
  Sender: FDA-Public Use
  Company Number: CZ-BAYER-2014-005208

PATIENT
  Age: 30 Year
  Sex: Female

DRUGS (1)
  1. MIRENA [Suspect]
     Indication: CONTRACEPTION
     Dosage: 20 MCG/24HR, CONT
     Route: 015
     Dates: start: 20121019, end: 20131125

REACTIONS (6)
  - Endometriosis [Recovered/Resolved]
  - Abdominal discomfort [Recovered/Resolved]
  - Device dislocation [Recovered/Resolved]
  - Vaginal haemorrhage [None]
  - Hypomenorrhoea [None]
  - Amenorrhoea [None]
